FAERS Safety Report 8031837-8 (Version None)
Quarter: 2012Q1

REPORT INFORMATION
  Report Type: 
  Country: None (occurrence: None)
  Receive Date: 20120109
  Receipt Date: 20120105
  Transmission Date: 20120608
  Serious: Yes (Death, Hospitalization)
  Sender: FDA-Public Use
  Company Number: BR-ASTRAZENECA-2010SE42962

PATIENT
  Age: 79 Year
  Sex: Female

DRUGS (6)
  1. SULPIRIDE [Concomitant]
     Indication: DEPRESSION
     Route: 048
     Dates: start: 20000101
  2. ATENOLOL [Suspect]
     Route: 048
  3. LEXOTAN [Concomitant]
     Indication: DEPRESSION
     Route: 048
     Dates: start: 20000101
  4. ATENOLOL [Suspect]
     Indication: HYPERTENSION
     Route: 048
     Dates: start: 20010101, end: 20100901
  5. SEROQUEL [Suspect]
     Indication: DEPRESSION
     Dosage: 1/4 TABLET OD
     Route: 048
     Dates: start: 20090101
  6. FLUOXETINE HYDROCHLORIDE [Concomitant]
     Indication: DEPRESSION
     Route: 048
     Dates: start: 20000101

REACTIONS (9)
  - DEATH [None]
  - NASOPHARYNGITIS [None]
  - DEPRESSION [None]
  - DYSPHAGIA [None]
  - DRUG PRESCRIBING ERROR [None]
  - WRONG TECHNIQUE IN DRUG USAGE PROCESS [None]
  - DEHYDRATION [None]
  - BLOOD PRESSURE INADEQUATELY CONTROLLED [None]
  - INCORRECT ROUTE OF DRUG ADMINISTRATION [None]
